FAERS Safety Report 15623265 (Version 1)
Quarter: 2018Q4

REPORT INFORMATION
  Report Type: Spontaneous
  Country: FR (occurrence: FR)
  Receive Date: 20181115
  Receipt Date: 20181115
  Transmission Date: 20190205
  Serious: Yes (Other)
  Sender: FDA-Public Use
  Company Number: US-BRAINTREE LABORATORIES-180579

PATIENT
  Sex: Female

DRUGS (1)
  1. EZICLEN [Suspect]
     Active Substance: MAGNESIUM SULFATE\POTASSIUM SULFATE\SODIUM SULFATE
     Route: 065

REACTIONS (8)
  - Peroneal nerve palsy [None]
  - Blood electrolytes abnormal [None]
  - Drug intolerance [None]
  - Circulatory collapse [None]
  - Limb discomfort [None]
  - Hypoaesthesia [None]
  - Hypotension [None]
  - Blood glucose decreased [None]
